FAERS Safety Report 14007526 (Version 1)
Quarter: 2017Q3

REPORT INFORMATION
  Report Type: Spontaneous
  Country: US (occurrence: None)
  Receive Date: 20170924
  Receipt Date: 20170924
  Transmission Date: 20171128
  Serious: No
  Sender: FDA-Public Use
  Company Number: None

PATIENT
  Age: 68 Year
  Sex: Male

DRUGS (1)
  1. COSENTYX [Suspect]
     Active Substance: SECUKINUMAB

REACTIONS (4)
  - Unresponsive to stimuli [None]
  - Blood creatine phosphokinase increased [None]
  - Drug effect decreased [None]
  - Abdominal discomfort [None]

NARRATIVE: CASE EVENT DATE: 20170923
